FAERS Safety Report 8927666 (Version 1)
Quarter: 2012Q4

REPORT INFORMATION
  Report Type: 
  Country: US (occurrence: US)
  Receive Date: 20121127
  Receipt Date: 20121127
  Transmission Date: 20130627
  Serious: Yes (Hospitalization)
  Sender: FDA-Public Use
  Company Number: US-JNJFOC-20121109700

PATIENT
  Age: 9 None
  Sex: Male

DRUGS (1)
  1. REMICADE [Suspect]
     Indication: COLITIS ULCERATIVE
     Route: 042

REACTIONS (3)
  - Dehydration [Unknown]
  - Renal failure acute [Not Recovered/Not Resolved]
  - Colitis ulcerative [Not Recovered/Not Resolved]
